FAERS Safety Report 7568671-9 (Version None)
Quarter: 2011Q2

REPORT INFORMATION
  Report Type: 
  Country: None (occurrence: None)
  Receive Date: 20110623
  Receipt Date: 20110617
  Transmission Date: 20111010
  Serious: Yes (Other)
  Sender: FDA-Public Use
  Company Number: IT-BRISTOL-MYERS SQUIBB COMPANY-15817836

PATIENT
  Age: 82 Year
  Sex: Female

DRUGS (11)
  1. ASPIRIN [Concomitant]
  2. REPAGLINIDE [Concomitant]
  3. TRAMADOL HCL [Concomitant]
  4. LASIX [Suspect]
     Indication: DIABETES MELLITUS
     Dosage: LASIX 25 MG
     Route: 048
     Dates: start: 20090101, end: 20100712
  5. HALCION [Concomitant]
  6. TORVAST [Concomitant]
  7. DIAZEPAM [Concomitant]
  8. TRAZODONE HCL [Concomitant]
  9. GLUCOPHAGE [Suspect]
     Indication: DIABETES MELLITUS
     Dosage: GLUCOPHAGE  500 MG
     Route: 048
     Dates: start: 20090101, end: 20100712
  10. ALTIAZEM [Concomitant]
  11. NITRODERM [Concomitant]

REACTIONS (3)
  - NAUSEA [None]
  - HYPONATRAEMIA [None]
  - VOMITING [None]
